FAERS Safety Report 7679145-9 (Version None)
Quarter: 2011Q3

REPORT INFORMATION
  Report Type: 
  Country: None (occurrence: None)
  Receive Date: 20110812
  Receipt Date: 20110729
  Transmission Date: 20111222
  Serious: Yes (Hospitalization, Other)
  Sender: FDA-Public Use
  Company Number: US-ELI_LILLY_AND_COMPANY-US201011002187

PATIENT
  Sex: Female

DRUGS (4)
  1. FORTEO [Suspect]
     Dosage: UNK
  2. ANTIHYPERTENSIVES [Concomitant]
     Indication: BLOOD PRESSURE
  3. FORTEO [Suspect]
     Indication: OSTEOPOROSIS
     Dosage: 20 UG, DAILY (1/D)
     Route: 058
     Dates: start: 20100201
  4. DIURETICS [Concomitant]

REACTIONS (6)
  - OEDEMA PERIPHERAL [None]
  - ULCER [None]
  - SYNCOPE [None]
  - PAIN IN EXTREMITY [None]
  - DRUG DOSE OMISSION [None]
  - GAIT DISTURBANCE [None]
